FAERS Safety Report 5162017-1 (Version None)
Quarter: 2006Q4

REPORT INFORMATION
  Report Type: 
  Country: None (occurrence: None)
  Receive Date: 20061130
  Receipt Date: 20061107
  Transmission Date: 20070319
  Serious: No
  Sender: FDA-Public Use
  Company Number: ES-AVENTIS-200621760GDDC

PATIENT
  Age: 28 Year
  Sex: Female

DRUGS (3)
  1. ARAVA [Suspect]
     Indication: RHEUMATOID ARTHRITIS
     Route: 048
     Dates: start: 20060201
  2. ARAVA [Suspect]
     Route: 048
     Dates: start: 20060201, end: 20061107
  3. CORTICOSTEROIDS [Suspect]
     Dosage: DOSE: UNK
     Dates: start: 20060201

REACTIONS (2)
  - DRUG EXPOSURE DURING PREGNANCY [None]
  - PREGNANCY [None]
